FAERS Safety Report 10178295 (Version 2)
Quarter: 2014Q2

REPORT INFORMATION
  Report Type: Report from Study
  Country: SE (occurrence: SE)
  Receive Date: 20140519
  Receipt Date: 20140519
  Transmission Date: 20141212
  Serious: Yes (Other)
  Sender: FDA-Public Use
  Company Number: SE-ROCHE-1074087

PATIENT
  Age: 75 Year
  Sex: Female
  Weight: 90 kg

DRUGS (13)
  1. RHUPH20/RITUXIMAB [Suspect]
     Indication: B-CELL LYMPHOMA
     Dosage: LAST DOSE PRIOR TO SAE 23/APR/2012
     Route: 058
     Dates: start: 20120423
  2. RHUPH20/RITUXIMAB [Suspect]
     Route: 058
     Dates: start: 20120515
  3. RHUPH20/RITUXIMAB [Suspect]
     Route: 058
     Dates: start: 20120626
  4. RHUPH20/RITUXIMAB [Suspect]
     Route: 058
     Dates: start: 20120605
  5. RITUXIMAB [Suspect]
     Indication: B-CELL LYMPHOMA
     Dosage: LAST DOSE PRIOR TO SAE 23/APR/2012
     Route: 042
     Dates: start: 20120404
  6. ALLOPURINOL [Concomitant]
     Indication: BLOOD URIC ACID
     Route: 065
     Dates: start: 20120404
  7. SPIRONOLAKTON [Concomitant]
     Indication: BLOOD PRESSURE
     Route: 065
     Dates: start: 20090818
  8. OMEPRAZOLE [Concomitant]
     Indication: ABDOMINAL PAIN UPPER
     Route: 065
     Dates: start: 20070213
  9. ATENOLOL [Concomitant]
     Indication: BLOOD PRESSURE
     Route: 065
     Dates: start: 20061211
  10. ENALAPRIL [Concomitant]
     Indication: BLOOD PRESSURE
     Route: 065
     Dates: start: 20090818
  11. SIMVASTATIN [Concomitant]
     Route: 065
     Dates: start: 20100416
  12. ONDANSETRON [Concomitant]
     Indication: NAUSEA
     Route: 065
     Dates: start: 20120404
  13. CIPROFLOXACIN [Concomitant]
     Route: 065
     Dates: start: 20120626

REACTIONS (1)
  - Erythema [Recovered/Resolved]
